FAERS Safety Report 4333036-X (Version None)
Quarter: 2004Q2

REPORT INFORMATION
  Report Type: 
  Country: None (occurrence: None)
  Receive Date: 20040401
  Receipt Date: 20040315
  Transmission Date: 20050107
  Serious: Yes (Hospitalization)
  Sender: FDA-Public Use
  Company Number: 200410944GDS

PATIENT
  Age: 39 Year
  Sex: Male

DRUGS (5)
  1. NIFEDIPINE [Suspect]
     Indication: HYPERTENSION
     Dosage: 120 MG, TOTAL DAILY, ORAL
     Route: 048
     Dates: end: 20030417
  2. VIAGRA [Suspect]
     Indication: ERECTILE DYSFUNCTION
     Dosage: 80 MG, TOTAL DAILY, ORAL
     Route: 048
     Dates: end: 20030417
  3. TRIPAMIDE [Concomitant]
  4. NADOLOL [Concomitant]
  5. TRIAZOLAM [Concomitant]

REACTIONS (9)
  - BRAIN STEM INFARCTION [None]
  - CARDIOMEGALY [None]
  - CEREBRAL ARTERY OCCLUSION [None]
  - CEREBRAL INFARCTION [None]
  - CEREBRAL THROMBOSIS [None]
  - HYPERTENSIVE HEART DISEASE [None]
  - HYPOTENSION [None]
  - LACUNAR INFARCTION [None]
  - TRANSIENT ISCHAEMIC ATTACK [None]
